FAERS Safety Report 6528111-5 (Version None)
Quarter: 2010Q1

REPORT INFORMATION
  Report Type: 
  Country: None (occurrence: None)
  Receive Date: 20100105
  Receipt Date: 20100105
  Transmission Date: 20100710
  Serious: Yes (Hospitalization)
  Sender: FDA-Public Use
  Company Number: None

PATIENT
  Sex: Female
  Weight: 58.7 kg

DRUGS (24)
  1. CISPLATIN [Suspect]
     Dosage: 139 MG
  2. ERBITUX [Suspect]
     Dosage: 1832 MG
  3. FLUOROURACIL [Suspect]
     Dosage: 7480 MG
  4. CHLORHEXIDINE GLUCONATE [Concomitant]
  5. CIPROFLOXACIN [Concomitant]
  6. CLINDAMYCIN [Concomitant]
  7. DICLOXACILLIN [Concomitant]
  8. FAMOTIDINE [Concomitant]
  9. FLUCONAZOLE [Concomitant]
  10. HEPARIN [Concomitant]
  11. LASIX [Concomitant]
  12. MAALOX [Concomitant]
  13. MAGNESIUM SULFATE [Concomitant]
  14. MORPHINE [Concomitant]
  15. MULTI-VITAMIN [Concomitant]
  16. MUPIROCIN [Concomitant]
  17. OCTREOTIDE ACETATE [Concomitant]
  18. ONDANSETRON [Concomitant]
  19. PANTOPRAZOLE [Concomitant]
  20. POTASSIUM PHOSPHATES [Concomitant]
  21. PSYLLIUM [Concomitant]
  22. SILVER SULFADIAZINE [Concomitant]
  23. VALACYCLOVIR [Concomitant]
  24. ZOSYN [Concomitant]

REACTIONS (9)
  - ABDOMINAL PAIN [None]
  - DIARRHOEA [None]
  - FATIGUE [None]
  - HERPES ZOSTER [None]
  - NAUSEA [None]
  - PAIN OF SKIN [None]
  - RASH PUSTULAR [None]
  - URINARY TRACT INFECTION [None]
  - WEIGHT DECREASED [None]
